FAERS Safety Report 14174395 (Version 7)
Quarter: 2019Q1

REPORT INFORMATION
  Report Type: Report from Study
  Country: None (occurrence: US)
  Receive Date: 20171109
  Receipt Date: 20190104
  Transmission Date: 20190417
  Serious: Yes (Other)
  Sender: FDA-Public Use
  Company Number: US-ABBVIE-17K-163-2151986-00

PATIENT
  Age: 50 Year
  Sex: Female

DRUGS (4)
  1. HUMIRA [Suspect]
     Active Substance: ADALIMUMAB
     Indication: RHEUMATOID ARTHRITIS
     Route: 058
     Dates: end: 2017
  2. METHOTREXATE. [Suspect]
     Active Substance: METHOTREXATE
     Indication: PRODUCT USED FOR UNKNOWN INDICATION
     Route: 065
  3. PREDNISONE. [Concomitant]
     Active Substance: PREDNISONE
     Indication: PRODUCT USED FOR UNKNOWN INDICATION
  4. HUMIRA [Suspect]
     Active Substance: ADALIMUMAB
     Indication: PSORIATIC ARTHROPATHY
     Route: 058

REACTIONS (46)
  - Jaw cyst [Not Recovered/Not Resolved]
  - Hepatomegaly [Unknown]
  - Hypoaesthesia [Not Recovered/Not Resolved]
  - Blood iron decreased [Unknown]
  - Stress [Not Recovered/Not Resolved]
  - Respiratory tract infection [Recovered/Resolved]
  - Sinusitis [Recovering/Resolving]
  - Back pain [Unknown]
  - Malaise [Unknown]
  - Mass [Unknown]
  - Decreased appetite [Not Recovered/Not Resolved]
  - Aptyalism [Unknown]
  - Depression [Not Recovered/Not Resolved]
  - Burning sensation [Not Recovered/Not Resolved]
  - Pain in extremity [Unknown]
  - Condition aggravated [Not Recovered/Not Resolved]
  - Pharyngeal mass [Not Recovered/Not Resolved]
  - Aphonia [Unknown]
  - White blood cell count increased [Unknown]
  - Scoliosis [Unknown]
  - Anxiety [Unknown]
  - Dry mouth [Not Recovered/Not Resolved]
  - Tooth infection [Recovering/Resolving]
  - Back pain [Recovering/Resolving]
  - Mouth breathing [Not Recovered/Not Resolved]
  - Headache [Not Recovered/Not Resolved]
  - Psoriasis [Not Recovered/Not Resolved]
  - Drug-induced liver injury [Unknown]
  - Spinal column injury [Recovering/Resolving]
  - Sensitivity to weather change [Unknown]
  - Nervousness [Unknown]
  - Blood calcium decreased [Unknown]
  - Nodule [Not Recovered/Not Resolved]
  - Nasopharyngitis [Recovered/Resolved]
  - Hepatitis C [Recovered/Resolved]
  - Drug effect decreased [Unknown]
  - Bone neoplasm [Not Recovered/Not Resolved]
  - Thirst [Not Recovered/Not Resolved]
  - Gingival disorder [Recovering/Resolving]
  - Arthralgia [Not Recovered/Not Resolved]
  - Rheumatoid arthritis [Recovered/Resolved]
  - Red blood cell count decreased [Unknown]
  - Liver injury [Unknown]
  - Liver disorder [Recovered/Resolved]
  - Thyroid mass [Unknown]
  - Arthritis [Recovering/Resolving]

NARRATIVE: CASE EVENT DATE: 2017
